FAERS Safety Report 25385604 (Version 1)
Quarter: 2025Q2

REPORT INFORMATION
  Report Type: Spontaneous
  Country: US (occurrence: None)
  Receive Date: 20250531
  Receipt Date: 20250531
  Transmission Date: 20250716
  Serious: Yes (Life-Threatening, Disabling)
  Sender: FDA-CTU
  Company Number: None

PATIENT
  Sex: Female

DRUGS (4)
  1. FLUOXETINE [Suspect]
     Active Substance: FLUOXETINE HYDROCHLORIDE
     Indication: Withdrawal syndrome
     Dates: start: 20120808
  2. SERTRALINE [Suspect]
     Active Substance: SERTRALINE HYDROCHLORIDE
     Indication: Depression
     Dates: start: 20120808, end: 20140808
  3. VENLAFAXINE [Concomitant]
     Active Substance: VENLAFAXINE HYDROCHLORIDE
  4. HYDROXYZINE [Concomitant]
     Active Substance: HYDROXYZINE HYDROCHLORIDE

REACTIONS (11)
  - Personality change [None]
  - Apathy [None]
  - Anhedonia [None]
  - Fatigue [None]
  - Hypersomnia [None]
  - Withdrawal syndrome [None]
  - Akathisia [None]
  - Depression [None]
  - Suicidal ideation [None]
  - Neurotoxicity [None]
  - Disability [None]

NARRATIVE: CASE EVENT DATE: 20140808
